FAERS Safety Report 23083531 (Version 1)
Quarter: 2023Q4

REPORT INFORMATION
  Report Type: Spontaneous
  Country: GB (occurrence: GB)
  Receive Date: 20231019
  Receipt Date: 20231019
  Transmission Date: 20240110
  Serious: Yes (Life-Threatening)
  Sender: FDA-Public Use
  Company Number: None

PATIENT
  Age: 56 Year
  Sex: Male
  Weight: 74 kg

DRUGS (7)
  1. CLARITHROMYCIN [Suspect]
     Active Substance: CLARITHROMYCIN
     Indication: Product used for unknown indication
     Dosage: UNK
     Route: 065
  2. ERYTHROMYCIN [Concomitant]
     Active Substance: ERYTHROMYCIN
     Dosage: 2 DOSAGE FORM
     Route: 065
     Dates: start: 20230823, end: 20230824
  3. FLUCLOXACILLIN [Concomitant]
     Active Substance: FLUCLOXACILLIN
     Dosage: 2 DOSAGE FORM
     Route: 065
     Dates: start: 20230825, end: 20230901
  4. PEPPERMINT OIL [Concomitant]
     Active Substance: PEPPERMINT OIL
     Dosage: 1 DOSAGE FORM
     Route: 065
     Dates: start: 20231004, end: 20231010
  5. QVAR [Concomitant]
     Active Substance: BECLOMETHASONE DIPROPIONATE
     Dosage: 4 DOSAGE FORM (ACTUATION)
     Route: 065
     Dates: start: 20230824, end: 20231010
  6. ALBUTEROL [Concomitant]
     Active Substance: ALBUTEROL
     Dosage: 2 DOSAGE FORM (ACTUATION)
     Route: 065
     Dates: start: 20230823, end: 20231010
  7. Zerobase [Concomitant]
     Dosage: 1 DOSAGE FORM (APPLICATION)
     Route: 065
     Dates: start: 20230904, end: 20231002

REACTIONS (1)
  - Oropharyngeal swelling [Recovered/Resolved]
